FAERS Safety Report 13000222 (Version 2)
Quarter: 2016Q4

REPORT INFORMATION
  Report Type: Report from Study
  Country: JP (occurrence: JP)
  Receive Date: 20161205
  Receipt Date: 20161216
  Transmission Date: 20170207
  Serious: Yes (Hospitalization)
  Sender: FDA-Public Use
  Company Number: JP-AMGEN-JPNCT2016163741

PATIENT
  Age: 76 Year
  Sex: Male
  Weight: 61 kg

DRUGS (14)
  1. PANITUMUMAB [Suspect]
     Active Substance: PANITUMUMAB
     Dosage: 369 MG, Q2WK
     Route: 041
     Dates: start: 20161018
  2. JANUVIA [Concomitant]
     Active Substance: SITAGLIPTIN PHOSPHATE
     Dosage: 50 MG, QD
     Route: 048
     Dates: end: 20161123
  3. GLIMEPIRIDE. [Concomitant]
     Active Substance: GLIMEPIRIDE
     Dosage: 1.5 MG, QD
     Route: 048
     Dates: end: 20161123
  4. PANITUMUMAB [Suspect]
     Active Substance: PANITUMUMAB
     Indication: RECTAL CANCER
     Dosage: 369 MG, Q2WK
     Route: 041
     Dates: start: 20160920, end: 20160920
  5. 5-FU [Suspect]
     Active Substance: FLUOROURACIL
     Indication: RECTAL CANCER
     Dosage: 333 MG, Q2WK
     Route: 040
     Dates: start: 20161018
  6. 5-FU [Suspect]
     Active Substance: FLUOROURACIL
     Dosage: 3320 MG, Q2WK
     Route: 041
     Dates: start: 20160920, end: 20160920
  7. OXALIPLATIN. [Suspect]
     Active Substance: OXALIPLATIN
     Indication: RECTAL CANCER
     Dosage: 107 MG, Q2WK
     Route: 041
     Dates: start: 20160920, end: 20160920
  8. 5-FU [Suspect]
     Active Substance: FLUOROURACIL
     Dosage: 3320 MG, Q2WK
     Route: 041
     Dates: start: 20161018
  9. VALSARTAN. [Concomitant]
     Active Substance: VALSARTAN
     Indication: HYPERTENSION
     Dosage: 40 MG, QD
     Route: 048
     Dates: end: 20161124
  10. BAYASPIRIN [Concomitant]
     Active Substance: ASPIRIN
     Indication: THROMBOSIS PROPHYLAXIS
     Dosage: 1 DF, QD
     Route: 048
  11. 5-FU [Suspect]
     Active Substance: FLUOROURACIL
     Dosage: 333 MG, Q2WK
     Route: 040
     Dates: start: 20160920, end: 20160920
  12. CALCIUM LEVOFOLINATE [Concomitant]
     Active Substance: LEVOLEUCOVORIN CALCIUM
     Indication: RECTAL CANCER
     Dosage: 330 MG, Q2WEEKS
     Route: 041
     Dates: start: 20160920, end: 20160920
  13. OXALIPLATIN. [Suspect]
     Active Substance: OXALIPLATIN
     Dosage: 107 MG, Q2WK
     Route: 041
     Dates: start: 20161018
  14. CALCIUM LEVOFOLINATE [Concomitant]
     Active Substance: LEVOLEUCOVORIN CALCIUM
     Dosage: 330 MG, Q2WEEKS
     Route: 041
     Dates: start: 20161018

REACTIONS (5)
  - Diarrhoea [Recovered/Resolved]
  - Decreased appetite [Unknown]
  - Stomatitis [Unknown]
  - Dermatitis acneiform [Unknown]
  - Hypernatraemia [Recovered/Resolved]

NARRATIVE: CASE EVENT DATE: 20161122
